FAERS Safety Report 4467021-4 (Version None)
Quarter: 2004Q3

REPORT INFORMATION
  Report Type: 
  Country: None (occurrence: None)
  Receive Date: 20040929
  Receipt Date: 20040929
  Transmission Date: 20050211
  Serious: Yes (Hospitalization)
  Sender: FDA-Public Use
  Company Number: None

PATIENT
  Sex: Male

DRUGS (11)
  1. SOTALOL HCL [Suspect]
     Indication: ATRIAL FIBRILLATION
     Dosage: 120 MG   BID   ORAL
     Route: 048
     Dates: start: 20010919, end: 20040210
  2. ROFECOXIB [Suspect]
     Indication: OSTEOARTHRITIS
     Dosage: 25 MG   DAILY   ORAL
     Route: 048
     Dates: start: 20021021, end: 20040210
  3. WARFARIN SODIUM [Concomitant]
  4. FUROSEMIDE [Concomitant]
  5. LISINOPRIL [Concomitant]
  6. SIMVASTATIN [Concomitant]
  7. TERAZOSIN HCL [Concomitant]
  8. LORATADINE [Concomitant]
  9. RABEPRAZOLE SODIUM [Concomitant]
  10. VIT E [Concomitant]
  11. SALSALATE [Concomitant]

REACTIONS (2)
  - DYSPNOEA [None]
  - OEDEMA PERIPHERAL [None]
